FAERS Safety Report 5140001-1 (Version None)
Quarter: 2006Q4

REPORT INFORMATION
  Report Type: 
  Country: None (occurrence: None)
  Receive Date: 20061031
  Receipt Date: 20060726
  Transmission Date: 20070319
  Serious: Yes (Other)
  Sender: FDA-Public Use
  Company Number: PHEH2006US09642

PATIENT
  Age: 2 Year
  Sex: Female
  Weight: 10.793 kg

DRUGS (5)
  1. ELIDEL [Suspect]
     Indication: ECZEMA
     Dosage: UNK, UNK
     Route: 061
  2. TYLENOL [Concomitant]
  3. AMOXIL ^WYETH-AYERST^ [Concomitant]
     Dosage: 150 MG, BID
     Route: 048
     Dates: start: 20040522, end: 20040601
  4. AMOXIL ^WYETH-AYERST^ [Concomitant]
     Dosage: 300 MG, BID
     Route: 048
     Dates: start: 20041019, end: 20041028
  5. OMNICEF [Concomitant]
     Indication: EAR INFECTION
     Dosage: 125 MG, QD
     Route: 048
     Dates: start: 20050117, end: 20050126

REACTIONS (5)
  - BIOPSY SKIN [None]
  - LYMPHADENECTOMY [None]
  - METASTATIC MALIGNANT MELANOMA [None]
  - RASH PAPULAR [None]
  - SKIN NEOPLASM EXCISION [None]
